FAERS Safety Report 9910511 (Version 2)
Quarter: 2014Q1

REPORT INFORMATION
  Report Type: Spontaneous
  Country: US (occurrence: US)
  Receive Date: 20140219
  Receipt Date: 20140219
  Transmission Date: 20141002
  Serious: Yes (Hospitalization)
  Sender: FDA-Public Use
  Company Number: US-GILEAD-2011-0048399

PATIENT
  Sex: Female

DRUGS (2)
  1. LETAIRIS [Suspect]
     Indication: PRODUCT USED FOR UNKNOWN INDICATION
     Dosage: 5 MG, UNK
     Route: 048
     Dates: start: 20081030
  2. LETAIRIS [Suspect]
     Dosage: 5 UNK, UNK
     Route: 048
     Dates: start: 20111224

REACTIONS (2)
  - Drug interaction [Unknown]
  - Weight increased [Unknown]
